FAERS Safety Report 7796997-2 (Version None)
Quarter: 2011Q4

REPORT INFORMATION
  Report Type: 
  Country: None (occurrence: None)
  Receive Date: 20111005
  Receipt Date: 20111005
  Transmission Date: 20120403
  Serious: No
  Sender: FDA-Public Use
  Company Number: None

PATIENT
  Age: 25 Year
  Sex: Female
  Weight: 59 kg

DRUGS (1)
  1. CIPROFLOXACIN [Suspect]
     Indication: PREOPERATIVE CARE
     Dates: start: 20110926, end: 20110926

REACTIONS (1)
  - RASH [None]
